FAERS Safety Report 8291265-7 (Version None)
Quarter: 2012Q2

REPORT INFORMATION
  Report Type: 
  Country: None (occurrence: None)
  Receive Date: 20120417
  Receipt Date: 20120411
  Transmission Date: 20120825
  Serious: No
  Sender: FDA-Public Use
  Company Number: US-BAYER-2012-035946

PATIENT
  Age: 50 Year
  Sex: Female
  Weight: 71 kg

DRUGS (5)
  1. ASCORBIC ACID [Concomitant]
  2. ALEVE (CAPLET) [Suspect]
     Indication: ANALGESIC THERAPY
     Dosage: 1 DF, PRN
     Route: 048
     Dates: start: 20110101, end: 20120410
  3. PROBIOTICS [Concomitant]
  4. VITAMIN B COMPLEX CAP [Concomitant]
  5. VITAMIN B COMPLEX CAP [Concomitant]

REACTIONS (1)
  - CHROMATURIA [None]
